FAERS Safety Report 5336147-5 (Version None)
Quarter: 2007Q1

REPORT INFORMATION
  Report Type: 
  Country: None (occurrence: None)
  Receive Date: 20070302
  Receipt Date: 20061222
  Transmission Date: 20070707
  Serious: No
  Sender: FDA-Public Use
  Company Number: PHEH2006US15484

PATIENT
  Sex: Female

DRUGS (2)
  1. ENABLEX [Suspect]
  2. OXYGEN (OXYGEN) [Concomitant]

REACTIONS (3)
  - CONSTIPATION [None]
  - DRY MOUTH [None]
  - DYSPNOEA [None]
